FAERS Safety Report 4385458-9 (Version None)
Quarter: 2004Q2

REPORT INFORMATION
  Report Type: 
  Country: None (occurrence: None)
  Receive Date: 20040622
  Receipt Date: 20040604
  Transmission Date: 20050107
  Serious: Yes (Hospitalization, Disabling)
  Sender: FDA-Public Use
  Company Number: A02200401295

PATIENT
  Age: 74 Year
  Sex: Male

DRUGS (6)
  1. KERLONE [Suspect]
     Dosage: 20 MG OD,
     Route: 048
     Dates: end: 20040316
  2. NEO-MERCAZOLE TAB [Suspect]
     Dosage: 1 UNIT BID, ORAL
     Route: 048
     Dates: start: 20040201, end: 20040316
  3. PREVISCAN - (FLUINDIONE) [Suspect]
     Dosage: 15 MG OD
     Route: 048
  4. ECAZIDE - (CAPTOPRIL/HYDROCHLOROTHIAZIDE) [Suspect]
     Dosage: 75 MG OD
     Route: 048
     Dates: end: 20040331
  5. DIGOXIN [Suspect]
     Dosage: 0.125 MG OD
     Route: 048
  6. CAPTOPRIL [Suspect]
     Dosage: 50 MG OD
     Route: 048

REACTIONS (25)
  - ACTIVATED PARTIAL THROMBOPLASTIN TIME PROLONGED [None]
  - AGRANULOCYTOSIS [None]
  - ASPARTATE AMINOTRANSFERASE INCREASED [None]
  - ASTERIXIS [None]
  - BALANCE DISORDER [None]
  - BLOOD BILIRUBIN INCREASED [None]
  - C-REACTIVE PROTEIN INCREASED [None]
  - CEREBELLAR SYNDROME [None]
  - COAGULOPATHY [None]
  - CULTURE POSITIVE [None]
  - ENTEROCOCCAL INFECTION [None]
  - ERYTHEMA [None]
  - EYE DISCHARGE [None]
  - EYE PAIN [None]
  - HEPATIC NEOPLASM [None]
  - INFECTION [None]
  - KLEBSIELLA INFECTION [None]
  - LYMPHADENOPATHY [None]
  - LYMPHOMA [None]
  - NEUTROPHIL COUNT DECREASED [None]
  - OEDEMA PERIPHERAL [None]
  - ORTHOSTATIC HYPOTENSION [None]
  - PHARYNGITIS [None]
  - PROTHROMBIN LEVEL DECREASED [None]
  - WHITE BLOOD CELL COUNT DECREASED [None]
